FAERS Safety Report 4960422-7 (Version None)
Quarter: 2006Q2

REPORT INFORMATION
  Report Type: 
  Country: None (occurrence: None)
  Receive Date: 20060403
  Receipt Date: 20060323
  Transmission Date: 20061013
  Serious: Yes (Other)
  Sender: FDA-Public Use
  Company Number: PHEH2006US03915

PATIENT
  Age: 46 Year
  Sex: Female

DRUGS (1)
  1. ELIDEL [Suspect]
     Indication: ARTHROPOD BITE
     Dosage: PRN, BID
     Route: 061
     Dates: start: 20050601, end: 20050801

REACTIONS (5)
  - ERYTHEMA [None]
  - OEDEMA PERIPHERAL [None]
  - PRURITUS [None]
  - SKIN NEOPLASM EXCISION [None]
  - SQUAMOUS CELL CARCINOMA [None]
